FAERS Safety Report 8916114 (Version 1)
Quarter: 2012Q4

REPORT INFORMATION
  Report Type: 
  Country: DE (occurrence: DE)
  Receive Date: 20121120
  Receipt Date: 20121120
  Transmission Date: 20130627
  Serious: Yes (Other)
  Sender: FDA-Public Use
  Company Number: GXKR2012DE003498

PATIENT
  Sex: Male

DRUGS (8)
  1. CITALOPRAM [Suspect]
  2. L-THYROXIN ^HENNING BERLIN^ [Concomitant]
  3. LASIX [Concomitant]
  4. PLAVIX [Concomitant]
  5. CARVEDILOL [Concomitant]
  6. OMNIC OCAS [Concomitant]
  7. PRAVASTATIN [Concomitant]
  8. DELIX [Concomitant]

REACTIONS (1)
  - Road traffic accident [Unknown]
